FAERS Safety Report 11678417 (Version 2)
Quarter: 2015Q4

REPORT INFORMATION
  Report Type: Spontaneous
  Country: US (occurrence: US)
  Receive Date: 20151027
  Receipt Date: 20151104
  Transmission Date: 20160304
  Serious: No
  Sender: FDA-Public Use
  Company Number: US-ELI_LILLY_AND_COMPANY-US201007002044

PATIENT
  Age: 82 Year
  Sex: Female

DRUGS (4)
  1. FORTEO [Suspect]
     Active Substance: TERIPARATIDE
     Dosage: 20 UG, DAILY (1/D)
  2. FORTEO [Suspect]
     Active Substance: TERIPARATIDE
     Dosage: 20 UG, DAILY (1/D)
  3. FORTEO [Suspect]
     Active Substance: TERIPARATIDE
     Indication: OSTEOPOROSIS
     Dosage: 20 UG, DAILY (1/D)
     Dates: start: 200912
  4. FORTEO [Suspect]
     Active Substance: TERIPARATIDE
     Dosage: 20 UG, DAILY (1/D)

REACTIONS (15)
  - Functional gastrointestinal disorder [Not Recovered/Not Resolved]
  - Vertigo [Unknown]
  - Cough [Recovered/Resolved]
  - Pain in extremity [Unknown]
  - Influenza [Recovered/Resolved]
  - Headache [Not Recovered/Not Resolved]
  - Hypokalaemia [Unknown]
  - Malaise [Unknown]
  - Dizziness postural [Unknown]
  - Pain [Recovered/Resolved]
  - Muscle spasms [Recovering/Resolving]
  - Hypotension [Not Recovered/Not Resolved]
  - Head discomfort [Unknown]
  - Upper respiratory tract congestion [Recovered/Resolved]
  - Diarrhoea [Recovered/Resolved]

NARRATIVE: CASE EVENT DATE: 201002
